FAERS Safety Report 8812172 (Version 4)
Quarter: 2013Q1

REPORT INFORMATION
  Report Type: Spontaneous
  Country: US (occurrence: None)
  Receive Date: 20120925
  Receipt Date: 20130128
  Transmission Date: 20140127
  Serious: Yes (Hospitalization, Other)
  Sender: FDA-Public Use
  Company Number: 2012-001273

PATIENT
  Age: 65 Year
  Sex: Female

DRUGS (30)
  1. ACTONEL [Suspect]
     Indication: OSTEOPOROSIS
     Route: 048
     Dates: start: 200912, end: 201003
  2. ACTONEL [Suspect]
     Indication: OSTEOPOROSIS PROPHYLAXIS
     Route: 048
     Dates: start: 200912, end: 201003
  3. ACTONEL [Suspect]
     Route: 048
     Dates: start: 200912, end: 201003
  4. ACTONEL (RISEDRONATE SODIUM) TABLET, 35MG [Suspect]
     Indication: OSTEOPOROSIS
     Route: 048
     Dates: start: 200709, end: 200912
  5. ACTONEL (RISEDRONATE SODIUM) TABLET, 35MG [Suspect]
     Indication: OSTEOPOROSIS PROPHYLAXIS
     Route: 048
     Dates: start: 200709, end: 200912
  6. ACTONEL (RISEDRONATE SODIUM) TABLET, 35MG [Suspect]
     Route: 048
     Dates: start: 200709, end: 200912
  7. ACTONEL WITH CALCIUM [Suspect]
     Indication: OSTEOPOROSIS
     Dosage: 35/500 ONCE WEEKLY, ORAL
     Route: 048
     Dates: start: 20060801
  8. ACTONEL WITH CALCIUM [Suspect]
     Indication: OSTEOPOROSIS PROPHYLAXIS
     Dosage: 35/500 ONCE WEEKLY, ORAL
     Route: 048
     Dates: start: 20060801
  9. ACTONEL WITH CALCIUM [Suspect]
     Dosage: 35/500 ONCE WEEKLY, ORAL
     Route: 048
     Dates: start: 20060801
  10. FOSAMAX (ALENDRONATE SODIUM) [Suspect]
     Indication: OSTEOPOROSIS
     Route: 048
     Dates: start: 20040702, end: 200603
  11. FOSAMAX (ALENDRONATE SODIUM) [Suspect]
     Indication: OSTEOPOROSIS PROPHYLAXIS
     Route: 048
     Dates: start: 20040702, end: 200603
  12. FOSAMAX (ALENDRONATE SODIUM) [Suspect]
     Route: 048
     Dates: start: 20040702, end: 200603
  13. PROPANOLOL [Concomitant]
  14. LISINOPRIL (LISINOPRIL) [Concomitant]
  15. ASPIRIN (ACETYLSALICYLIC ACID) [Concomitant]
  16. CALTRATE + VITAMIN D (CALCIUM CARBONATE, COLECALCIFEROL) [Concomitant]
  17. PRILOSEC /00661201/ (OMEPRAZOLE) [Concomitant]
  18. MULTIVITAMIN /00097801/ (ASCORBIC ACID, CALCIUM PANTOTHENATE, ERGOCALCIFEROL, NICOTINAMIDE, PYRIDOXINE HYDROCHLORIDE, RETINOL, RIBOFLAVIN, THIAMINE HYDROCHLORIDE) [Concomitant]
  19. KAPIDEX (DEXLANSOPRAZOLE) [Concomitant]
  20. CIPRO /00697201/ (CIPROFLOXACIN) [Concomitant]
  21. PREMARIN (ESTROGENS CONJUGATED) [Concomitant]
  22. CELEBREX (CELECOXIB) [Concomitant]
  23. VITAMIN E /00110501/ (TOCOPHEROL) [Concomitant]
  24. OTHER NUTRIENTS [Concomitant]
  25. CHLORHEXIDINE (CHLORHEXIDINE) [Concomitant]
  26. DOXYCYCLINE (DOXYCYCLINE) [Concomitant]
  27. IBUPROFEN (IBUPROFEN) [Concomitant]
  28. METHYLPREDNISOLONE (METHYLPREDNISOLONE) [Concomitant]
  29. AMOXICILLIN W/CLAVULANATE POTASSIUM (AMOXICILLIN, CLAVULANATE POTASSIUM) [Concomitant]
  30. SIMVASTATIN (SIMVASTATIN) [Concomitant]

REACTIONS (15)
  - Atypical femur fracture [None]
  - Stress fracture [None]
  - Muscular weakness [None]
  - Musculoskeletal stiffness [None]
  - Abasia [None]
  - Bone disorder [None]
  - Osteogenesis imperfecta [None]
  - Low turnover osteopathy [None]
  - Pain [None]
  - Fall [None]
  - Skeletal injury [None]
  - Contusion [None]
  - Pathological fracture [None]
  - Pain in extremity [None]
  - Bone marrow oedema [None]
